FAERS Safety Report 17609213 (Version 1)
Quarter: 2020Q1

REPORT INFORMATION
  Report Type: Spontaneous
  Country: US (occurrence: US)
  Receive Date: 20200328
  Receipt Date: 20200328
  Transmission Date: 20200409
  Serious: Yes (Hospitalization)
  Sender: FDA-Public Use
  Company Number: None

PATIENT
  Sex: Female
  Weight: 19.3 kg

DRUGS (4)
  1. TEMOZOLOMIDE 340MG [Suspect]
     Active Substance: TEMOZOLOMIDE
  2. LEUKINE [Suspect]
     Active Substance: SARGRAMOSTIM
  3. DINUTUXIMAB [Suspect]
     Active Substance: DINUTUXIMAB
     Dates: end: 20200320
  4. CAMPTOSAR [Suspect]
     Active Substance: IRINOTECAN HYDROCHLORIDE
     Dates: end: 20200320

REACTIONS (9)
  - Blood creatinine increased [None]
  - Blood urea increased [None]
  - Urine output decreased [None]
  - Nephropathy [None]
  - Generalised oedema [None]
  - Kidney hypermobility [None]
  - Tubulointerstitial nephritis [None]
  - Pyelocaliectasis [None]
  - Acute kidney injury [None]

NARRATIVE: CASE EVENT DATE: 20200323
